FAERS Safety Report 7386789-0 (Version None)
Quarter: 2011Q1

REPORT INFORMATION
  Report Type: 
  Country: None (occurrence: None)
  Receive Date: 20110331
  Receipt Date: 20110325
  Transmission Date: 20110831
  Serious: Yes (Death)
  Sender: FDA-Public Use
  Company Number: SG-ASTRAZENECA-2011SE17734

PATIENT

DRUGS (1)
  1. MERONEM [Suspect]
     Route: 042

REACTIONS (1)
  - DRUG HYPERSENSITIVITY [None]
